FAERS Safety Report 7407107-5 (Version None)
Quarter: 2011Q2

REPORT INFORMATION
  Report Type: 
  Country: None (occurrence: None)
  Receive Date: 20110411
  Receipt Date: 20110406
  Transmission Date: 20111010
  Serious: Yes (Other)
  Sender: FDA-Public Use
  Company Number: CHNY2007GB02742

PATIENT
  Age: 29 Year
  Sex: Female

DRUGS (1)
  1. NICOTINE [Suspect]
     Indication: DRUG WITHDRAWAL MAINTENANCE THERAPY
     Route: 062

REACTIONS (1)
  - CEREBRAL HAEMORRHAGE [None]
